FAERS Safety Report 7992225-3 (Version None)
Quarter: 2011Q4

REPORT INFORMATION
  Report Type: 
  Country: None (occurrence: None)
  Receive Date: 20111219
  Receipt Date: 20111208
  Transmission Date: 20120403
  Serious: Yes (Other)
  Sender: FDA-Public Use
  Company Number: MX-ELI_LILLY_AND_COMPANY-MX201110008216

PATIENT
  Age: 25 Year
  Sex: Male
  Weight: 60 kg

DRUGS (4)
  1. ZYPREXA [Suspect]
     Dosage: 10 MG, UNK
     Route: 048
     Dates: start: 20010101
  2. ZYPREXA [Suspect]
     Dosage: 5 MG, UNK
     Route: 065
  3. FLUOXETINE [Concomitant]
     Dosage: 40 MG, QD
  4. ZYPREXA [Suspect]
     Indication: SLEEP DISORDER
     Dosage: 5 MG, UNK
     Route: 048
     Dates: start: 20010101

REACTIONS (8)
  - BRAIN INJURY [None]
  - INSOMNIA [None]
  - DRUG WITHDRAWAL SYNDROME [None]
  - ATTENTION DEFICIT/HYPERACTIVITY DISORDER [None]
  - OBSESSIVE-COMPULSIVE DISORDER [None]
  - DEPRESSION [None]
  - DISTURBANCE IN ATTENTION [None]
  - OFF LABEL USE [None]
